FAERS Safety Report 10088513 (Version 1)
Quarter: 2014Q2

REPORT INFORMATION
  Report Type: Spontaneous
  Country: US (occurrence: US)
  Receive Date: 20140421
  Receipt Date: 20140421
  Transmission Date: 20141212
  Serious: No
  Sender: FDA-Public Use
  Company Number: US-BIOGENIDEC-2014BI032025

PATIENT
  Age: 64 Year
  Sex: Female
  Weight: 31 kg

DRUGS (2)
  1. TECFIDERA [Suspect]
     Indication: MULTIPLE SCLEROSIS
     Dates: start: 20140317
  2. ECOTRIN [Concomitant]

REACTIONS (2)
  - Hypersomnia [Unknown]
  - Headache [Unknown]
